FAERS Safety Report 10043225 (Version 1)
Quarter: 2014Q1

REPORT INFORMATION
  Report Type: Spontaneous
  Country: US (occurrence: US)
  Receive Date: 20140328
  Receipt Date: 20140328
  Transmission Date: 20141002
  Serious: Yes (Hospitalization)
  Sender: FDA-Public Use
  Company Number: US-SUN PHARMACEUTICAL INDUSTRIES LTD-2014SUN00647

PATIENT
  Age: 56 Year
  Sex: Female
  Weight: 56.4 kg

DRUGS (10)
  1. CARVEDILOL 6.25 MG TABLET [Suspect]
     Indication: PRODUCT USED FOR UNKNOWN INDICATION
     Dosage: 6.25 MG, BID
     Route: 065
  2. LIDOCAINE [Suspect]
     Indication: LOCAL ANAESTHESIA
     Dosage: 20 ML, UNK
     Route: 058
  3. LIDOCAINE [Suspect]
     Dosage: 10 ML, UNK
     Route: 058
  4. LIDOCAINE [Suspect]
     Dosage: 30 ML, UNK
     Route: 058
  5. ISOSORBIDE DINITRATE [Suspect]
     Indication: PRODUCT USED FOR UNKNOWN INDICATION
     Dosage: 10 MG, TID
     Route: 065
  6. CANDESARTAN [Concomitant]
     Dosage: 16 MG, DAILY
  7. HYDRALAZINE [Concomitant]
     Dosage: 25 MG, TID
  8. MIDAZOLAM [Concomitant]
     Indication: SEDATION
     Dosage: 1 MG, UNK
     Route: 042
  9. MIDAZOLAM [Concomitant]
     Dosage: 1 MG, UNK
     Route: 042
  10. FENTANYL [Concomitant]
     Indication: SEDATION
     Dosage: 50 MCG, UNK
     Route: 042

REACTIONS (5)
  - Pulseless electrical activity [Recovered/Resolved]
  - Respiratory acidosis [Recovered/Resolved]
  - Metabolic acidosis [Recovered/Resolved]
  - Grand mal convulsion [Recovered/Resolved]
  - Toxicity to various agents [Recovered/Resolved]
